FAERS Safety Report 7512523-7 (Version None)
Quarter: 2011Q2

REPORT INFORMATION
  Report Type: 
  Country: None (occurrence: None)
  Receive Date: 20110531
  Receipt Date: 20110526
  Transmission Date: 20111010
  Serious: Yes (Death, Hospitalization)
  Sender: FDA-Public Use
  Company Number: US-ASTRAZENECA-2011SE32303

PATIENT
  Sex: Male

DRUGS (2)
  1. AMLODIPINE BESYLATE [Suspect]
  2. TOPROL-XL [Suspect]
     Route: 048

REACTIONS (2)
  - PERICARDIAL EFFUSION [None]
  - PULMONARY OEDEMA [None]
